FAERS Safety Report 17015085 (Version 1)
Quarter: 2019Q4

REPORT INFORMATION
  Report Type: Other
  Country: GB (occurrence: GB)
  Receive Date: 20191111
  Receipt Date: 20191111
  Transmission Date: 20200122
  Serious: Yes (Other)
  Sender: FDA-Public Use
  Company Number: GB-EMCURE PHARMACEUTICALS LTD-2019-EPL-1028

PATIENT
  Age: 29 Year
  Sex: Female
  Weight: 92 kg

DRUGS (11)
  1. CLOTRIMAZOLE. [Concomitant]
     Active Substance: CLOTRIMAZOLE
     Dosage: APPLY 2-3 TIMES/DAY.
     Dates: start: 20171214, end: 20180111
  2. CITALOPRAM [Concomitant]
     Active Substance: CITALOPRAM HYDROBROMIDE
     Dosage: 1 DF DAILY
     Dates: start: 20170131, end: 20171206
  3. NAPROXEN. [Concomitant]
     Active Substance: NAPROXEN
     Dosage: 3 DF DAILY
     Dates: start: 20170131
  4. PULMICORT TURBUHALER [Concomitant]
     Active Substance: BUDESONIDE
     Dosage: 2 DF
     Route: 055
     Dates: start: 20170131
  5. AMITRIPTYLINE HYDROCHLORIDE. [Concomitant]
     Active Substance: AMITRIPTYLINE HYDROCHLORIDE
     Dosage: 3 DF DAILY, AS DIRECTED.
     Dates: start: 20170131
  6. SUMATRIPTAN. [Concomitant]
     Active Substance: SUMATRIPTAN
     Dosage: TAKE ONE AS DIRECTED MAXIMUM 2 IN 24 HOURS.
     Dates: start: 20170131
  7. OMEPRAZOLE. [Concomitant]
     Active Substance: OMEPRAZOLE
     Dosage: 1 DF
     Dates: start: 20170131
  8. TRAMADOL. [Concomitant]
     Active Substance: TRAMADOL
     Dosage: TAKE 1 OR 2 AS DIRECTED.
     Dates: start: 20170131
  9. TERBUTALINE [Concomitant]
     Active Substance: TERBUTALINE
     Dosage: 2 DF DAILY, PUFF.
     Route: 055
     Dates: start: 20170131
  10. DOXYCYCLINE. [Concomitant]
     Active Substance: DOXYCYCLINE
     Dosage: 1 DF DAILY
     Dates: start: 20171206
  11. SERTRALINE HYDROCHLORIDE. [Suspect]
     Active Substance: SERTRALINE HYDROCHLORIDE
     Indication: PRODUCT USED FOR UNKNOWN INDICATION
     Dosage: UNK
     Dates: start: 20171211

REACTIONS (2)
  - Post viral fatigue syndrome [Recovered/Resolved]
  - Condition aggravated [Recovered/Resolved]

NARRATIVE: CASE EVENT DATE: 20171220
